FAERS Safety Report 6530199-2 (Version None)
Quarter: 2009Q4

REPORT INFORMATION
  Report Type: 
  Country: None (occurrence: None)
  Receive Date: 20091231
  Receipt Date: 20091222
  Transmission Date: 20100525
  Serious: Yes (Hospitalization)
  Sender: FDA-Public Use
  Company Number: 003463

PATIENT

DRUGS (1)
  1. LACOSAMIDE [Suspect]
     Dosage: 600 MG BID, }400 MG/DAY ONE AND HALF TABLETS

REACTIONS (1)
  - OVERDOSE [None]
